FAERS Safety Report 9615659 (Version 4)
Quarter: 2014Q1

REPORT INFORMATION
  Report Type: Report from Study
  Country: AT (occurrence: AT)
  Receive Date: 20131011
  Receipt Date: 20140127
  Transmission Date: 20141002
  Serious: Yes (Hospitalization)
  Sender: FDA-Public Use
  Company Number: AT-MERCK-1310AUT003974

PATIENT
  Age: 49 Year
  Sex: Female

DRUGS (6)
  1. RIBAVIRIN [Suspect]
     Indication: CHRONIC HEPATITIS C
     Dosage: 400 MG, QD (LAST DOSE PRIOR TO SAE: 05-SEP-2013
     Route: 048
     Dates: start: 20121211, end: 20130905
  2. BOCEPREVIR [Suspect]
     Indication: CHRONIC HEPATITIS C
     Dosage: 1 DF, QD (DATE OF LAST DOSE PRIOR TO SAE: 04-SEP-2013
     Route: 048
     Dates: start: 20130108, end: 20130904
  3. PEGINTERFERON ALFA-2A [Suspect]
     Indication: CHRONIC HEPATITIS C
     Dosage: 180 MICROGRAM, QW (LAST DOSE PRIOR TO SAE: 02-SEP-2013
     Route: 058
     Dates: start: 20121211, end: 20130905
  4. SPIRIVA [Concomitant]
     Dosage: UNK
     Dates: start: 20060101
  5. SERETIDE [Concomitant]
     Dosage: UNK
     Dates: start: 20060101
  6. PROPIONATE, SALMETEROL XINAFOATE [Concomitant]

REACTIONS (1)
  - Hepatic failure [Recovered/Resolved]
